FAERS Safety Report 5752158-X (Version None)
Quarter: 2008Q2

REPORT INFORMATION
  Report Type: 
  Country: None (occurrence: None)
  Receive Date: 20080529
  Receipt Date: 20080523
  Transmission Date: 20081010
  Serious: Yes (Hospitalization)
  Sender: FDA-Public Use
  Company Number: FR-WYE-G01584908

PATIENT
  Age: 51 Year
  Sex: Male

DRUGS (1)
  1. RHINADVIL [Suspect]
     Dosage: UNKNOWN
     Route: 048
     Dates: start: 20071001

REACTIONS (1)
  - ANALGESIC ASTHMA SYNDROME [None]
